FAERS Safety Report 6999768-X (Version None)
Quarter: 2010Q3

REPORT INFORMATION
  Report Type: 
  Country: None (occurrence: None)
  Receive Date: 20100920
  Receipt Date: 20100209
  Transmission Date: 20110219
  Serious: No
  Sender: FDA-Public Use
  Company Number: US-ASTRAZENECA-2010SE06835

PATIENT
  Age: 15 Year
  Sex: Male
  Weight: 62.1 kg

DRUGS (3)
  1. SEROQUEL XR [Suspect]
     Route: 048
     Dates: start: 20091219
  2. ZOLOFT [Concomitant]
  3. DEPAKOTE [Concomitant]

REACTIONS (2)
  - URINARY INCONTINENCE [None]
  - WEIGHT INCREASED [None]
